FAERS Safety Report 9846291 (Version 1)
Quarter: 2014Q1

REPORT INFORMATION
  Report Type: Spontaneous
  Country: US (occurrence: None)
  Receive Date: 20140123
  Receipt Date: 20140123
  Transmission Date: 20141002
  Serious: Yes (Other)
  Sender: FDA-Public Use
  Company Number: 1401-0131

PATIENT
  Age: 84 Year
  Sex: 0

DRUGS (1)
  1. EYLEA [Suspect]

REACTIONS (1)
  - Death [None]
